FAERS Safety Report 5132011-5 (Version None)
Quarter: 2006Q4

REPORT INFORMATION
  Report Type: 
  Country: None (occurrence: None)
  Receive Date: 20061017
  Receipt Date: 20061005
  Transmission Date: 20070319
  Serious: Yes (Other)
  Sender: FDA-Public Use
  Company Number: 2006124888

PATIENT
  Age: 76 Year
  Sex: Male
  Weight: 99.3377 kg

DRUGS (1)
  1. LIPITOR [Suspect]

REACTIONS (4)
  - CORONARY ARTERIAL STENT INSERTION [None]
  - DYSURIA [None]
  - NEUROGENIC BLADDER [None]
  - NEUROPATHY [None]
